FAERS Safety Report 4926315-6 (Version None)
Quarter: 2006Q1

REPORT INFORMATION
  Report Type: 
  Country: None (occurrence: None)
  Receive Date: 20060228
  Receipt Date: 20051027
  Transmission Date: 20060701
  Serious: No
  Sender: FDA-Public Use
  Company Number: US-GLAXOSMITHKLINE-A0579906A

PATIENT
  Age: 30 Year
  Sex: Female

DRUGS (2)
  1. LAMICTAL [Suspect]
     Indication: BIPOLAR DISORDER
     Dosage: 25MG PER DAY
     Route: 048
     Dates: start: 20050926
  2. ZOLOFT [Concomitant]

REACTIONS (6)
  - CONTUSION [None]
  - GLOSSODYNIA [None]
  - LYMPHADENOPATHY [None]
  - MOUTH ULCERATION [None]
  - ORAL MUCOSAL BLISTERING [None]
  - PHARYNGOLARYNGEAL PAIN [None]
